FAERS Safety Report 4727124-3 (Version None)
Quarter: 2005Q3

REPORT INFORMATION
  Report Type: 
  Country: None (occurrence: None)
  Receive Date: 20050726
  Receipt Date: 20050716
  Transmission Date: 20060218
  Serious: Yes (Other)
  Sender: FDA-Public Use
  Company Number: US-2005-014104

PATIENT
  Sex: Female

DRUGS (1)
  1. CLIMARA [Suspect]
     Dosage: TRANSDERMAL
     Route: 062
     Dates: start: 20040901

REACTIONS (2)
  - BLADDER MASS [None]
  - BLOOD URINE PRESENT [None]
